FAERS Safety Report 15809517 (Version 4)
Quarter: 2019Q2

REPORT INFORMATION
  Report Type: Report from Study
  Country: US (occurrence: US)
  Receive Date: 20190111
  Receipt Date: 20190517
  Transmission Date: 20190711
  Serious: No
  Sender: FDA-Public Use
  Company Number: PHEH2019US001138

PATIENT
  Sex: Female

DRUGS (1)
  1. ENTRESTO [Suspect]
     Active Substance: SACUBITRIL\VALSARTAN
     Indication: CARDIAC FAILURE CONGESTIVE
     Route: 048

REACTIONS (7)
  - Decreased immune responsiveness [Unknown]
  - Sleep disorder [Unknown]
  - Malaise [Unknown]
  - Cough [Unknown]
  - Bone pain [Unknown]
  - Chills [Unknown]
  - Dizziness [Unknown]
